FAERS Safety Report 9511335 (Version 2)
Quarter: 2013Q3

REPORT INFORMATION
  Report Type: Spontaneous
  Country: US (occurrence: US)
  Receive Date: 20130910
  Receipt Date: 20130910
  Transmission Date: 20140515
  Serious: Yes (Other)
  Sender: FDA-Public Use
  Company Number: US-GENZYME-POMP-1001556

PATIENT
  Age: 14 Year
  Sex: Male
  Weight: 40.9 kg

DRUGS (7)
  1. MYOZYME [Suspect]
     Indication: GLYCOGEN STORAGE DISEASE TYPE II
     Dosage: 800 MG, Q2W
     Route: 042
     Dates: start: 20040916, end: 201008
  2. LIDOCAINE [Concomitant]
     Indication: PRODUCT USED FOR UNKNOWN INDICATION
     Dosage: UNK
     Route: 061
     Dates: start: 20081120
  3. HEPARIN LOCK FLUSH [Concomitant]
     Indication: PRODUCT USED FOR UNKNOWN INDICATION
     Dosage: 3 ML, Q4W
     Route: 042
     Dates: start: 20051122
  4. EPIPEN [Concomitant]
     Indication: HYPERSENSITIVITY
     Dosage: 0.3 MG, PRN
     Route: 065
     Dates: start: 20071120
  5. POLYETHYLENE GLYCOL [Concomitant]
     Indication: CONSTIPATION
     Dosage: 1 UNK, PRN
     Route: 065
     Dates: start: 20081120
  6. LYRICA [Concomitant]
     Indication: PRODUCT USED FOR UNKNOWN INDICATION
     Dosage: 25 MG, TID
     Route: 048
     Dates: start: 20090212
  7. SODIUM CHLORIDE [Concomitant]
     Indication: PRODUCT USED FOR UNKNOWN INDICATION
     Dosage: 5 ML, BID
     Route: 042
     Dates: start: 20000516

REACTIONS (1)
  - Decubitus ulcer [Recovered/Resolved]
